FAERS Safety Report 4354760-9 (Version None)
Quarter: 2004Q2

REPORT INFORMATION
  Report Type: 
  Country: None (occurrence: None)
  Receive Date: 20040507
  Receipt Date: 20031219
  Transmission Date: 20050107
  Serious: Yes (Hospitalization)
  Sender: FDA-Public Use
  Company Number: 200314852FR

PATIENT
  Age: 72 Year
  Sex: Male

DRUGS (9)
  1. CLAFORAN [Suspect]
     Dates: start: 20030924, end: 20031004
  2. RIFADIN [Suspect]
     Dates: start: 20030924, end: 20031008
  3. CIPROFLOXACIN [Suspect]
     Route: 048
     Dates: start: 20030915, end: 20030924
  4. GENTALLINE [Suspect]
     Route: 042
     Dates: start: 20030915, end: 20031006
  5. TAZOCILLINE [Suspect]
     Dates: start: 20031004, end: 20031008
  6. HYTACAND [Concomitant]
  7. LIPANTHYL ^THISSEN^ [Concomitant]
  8. DILTIAZEM HCL [Concomitant]
  9. DI-ANTALVIC [Concomitant]

REACTIONS (8)
  - BLOOD BILIRUBIN INCREASED [None]
  - CATHETER RELATED INFECTION [None]
  - GAMMA-GLUTAMYLTRANSFERASE INCREASED [None]
  - HEPATIC ENZYME INCREASED [None]
  - IMPLANT SITE INFECTION [None]
  - RENAL FAILURE [None]
  - SERRATIA INFECTION [None]
  - STAPHYLOCOCCAL INFECTION [None]
